FAERS Safety Report 4719476-5 (Version None)
Quarter: 2005Q3

REPORT INFORMATION
  Report Type: 
  Country: None (occurrence: None)
  Receive Date: 20050719
  Receipt Date: 20050705
  Transmission Date: 20060218
  Serious: Yes (Other)
  Sender: FDA-Public Use
  Company Number: USA0507101915

PATIENT
  Age: 85 Year
  Sex: Male

DRUGS (2)
  1. ALIMTA [Suspect]
     Indication: NON-SMALL CELL LUNG CANCER
  2. GEMZAR [Suspect]
     Indication: NON-SMALL CELL LUNG CANCER

REACTIONS (8)
  - ANAEMIA [None]
  - BLOOD CREATININE INCREASED [None]
  - CANDIDIASIS [None]
  - DIALYSIS [None]
  - INFECTION [None]
  - THERAPY NON-RESPONDER [None]
  - WHITE BLOOD CELL COUNT DECREASED [None]
  - WHITE BLOOD CELLS URINE POSITIVE [None]
